FAERS Safety Report 12130020 (Version 1)
Quarter: 2016Q1

REPORT INFORMATION
  Report Type: Spontaneous
  Country: US (occurrence: None)
  Receive Date: 20160229
  Receipt Date: 20160229
  Transmission Date: 20160526
  Serious: Yes (Hospitalization)
  Sender: FDA-Public Use
  Company Number: None

PATIENT
  Age: 69 Year
  Sex: Male
  Weight: 129.7 kg

DRUGS (1)
  1. BUPROPION. [Suspect]
     Active Substance: BUPROPION
     Indication: DEPRESSION
     Route: 048
     Dates: start: 20101220, end: 20150531

REACTIONS (7)
  - Muscle spasms [None]
  - Encephalopathy [None]
  - Delirium [None]
  - Contraindicated drug administered [None]
  - Dependence on respirator [None]
  - Respiratory failure [None]
  - Tremor [None]

NARRATIVE: CASE EVENT DATE: 20150301
